FAERS Safety Report 10777396 (Version 1)
Quarter: 2015Q1

REPORT INFORMATION
  Report Type: Spontaneous
  Country: SK (occurrence: SK)
  Receive Date: 20150209
  Receipt Date: 20150209
  Transmission Date: 20150721
  Serious: Yes (Hospitalization)
  Sender: FDA-Public Use
  Company Number: SK-BAYER-2015-016816

PATIENT
  Age: 92 Year
  Sex: Female

DRUGS (5)
  1. CIPHIN [Concomitant]
     Active Substance: BENZYL ALCOHOL\CIPROFLOXACIN HYDROCHLORIDE\HYDROCORTISONE
     Indication: PNEUMONIA
     Dosage: UNK
  2. INDAPAMIDE. [Concomitant]
     Active Substance: INDAPAMIDE
     Dosage: 1 DF, QD
  3. EBRANTIL [Concomitant]
     Active Substance: URAPIDIL
     Indication: HYPERTENSION
     Dosage: 30 MG, QD
  4. ULTRAVIST [Suspect]
     Active Substance: IOPROMIDE
     Indication: CEREBROVASCULAR ACCIDENT
     Dosage: UNK UNK, ONCE
     Route: 042
     Dates: start: 20141229, end: 20141229
  5. PRENESSA [Concomitant]
     Active Substance: PERINDOPRIL
     Indication: HYPERTENSION
     Dosage: 4 MG, QD

REACTIONS (1)
  - Nephropathy toxic [Recovered/Resolved]
